FAERS Safety Report 8105584-8 (Version None)
Quarter: 2012Q1

REPORT INFORMATION
  Report Type: 
  Country: None (occurrence: None)
  Receive Date: 20120201
  Receipt Date: 20120113
  Transmission Date: 20120608
  Serious: Yes (Hospitalization)
  Sender: FDA-Public Use
  Company Number: IE-MEDIMMUNE-MEDI-0014588

PATIENT
  Sex: Female
  Weight: 7.04 kg

DRUGS (3)
  1. FERIN SOL [Concomitant]
  2. SYNAGIS [Suspect]
     Route: 030
     Dates: start: 20111013, end: 20111013
  3. KAPSOVIT [Concomitant]

REACTIONS (1)
  - OROPHARYNGEAL PAIN [None]
